FAERS Safety Report 8782385 (Version 2)
Quarter: 2012Q4

REPORT INFORMATION
  Report Type: 
  Country: US (occurrence: US)
  Receive Date: 20120913
  Receipt Date: 20121012
  Transmission Date: 20130627
  Serious: Yes (Other)
  Sender: FDA-Public Use
  Company Number: CHPA2012US019253

PATIENT
  Age: 76 Year
  Sex: Female

DRUGS (2)
  1. BENEFIBER STICK PACKS [Suspect]
     Indication: BLOOD CHOLESTEROL
     Dosage: 1 DF, QD
     Route: 048
     Dates: start: 2011
  2. DRUG THERAPY NOS [Suspect]
     Dosage: UNK, UNK
     Dates: start: 201201

REACTIONS (3)
  - Muscle atrophy [Unknown]
  - Malaise [Unknown]
  - Off label use [Unknown]
